FAERS Safety Report 13953038 (Version 1)
Quarter: 2017Q3

REPORT INFORMATION
  Report Type: Report from Study
  Country: BR (occurrence: BR)
  Receive Date: 20170911
  Receipt Date: 20170911
  Transmission Date: 20171128
  Serious: Yes (Other)
  Sender: FDA-Public Use
  Company Number: BR-ROCHE-1753455

PATIENT
  Sex: Male
  Weight: 105 kg

DRUGS (2)
  1. AVASTIN [Suspect]
     Active Substance: BEVACIZUMAB
     Route: 065
     Dates: start: 20170809
  2. AVASTIN [Suspect]
     Active Substance: BEVACIZUMAB
     Indication: COLORECTAL CANCER
     Dosage: LATEST DOSE PRIOR TO ADVERSE EVENT: 18/APR/2016
     Route: 065

REACTIONS (8)
  - Atrophy [Not Recovered/Not Resolved]
  - Peritoneal disorder [Unknown]
  - Drug ineffective [Unknown]
  - Gait disturbance [Not Recovered/Not Resolved]
  - Muscular weakness [Unknown]
  - Muscle rigidity [Unknown]
  - Neoplasm [Not Recovered/Not Resolved]
  - Nodule [Not Recovered/Not Resolved]
